FAERS Safety Report 8581407-8 (Version None)
Quarter: 2012Q3

REPORT INFORMATION
  Report Type: 
  Country: None (occurrence: None)
  Receive Date: 20120809
  Receipt Date: 20120801
  Transmission Date: 20120928
  Serious: Yes (Other)
  Sender: FDA-Public Use
  Company Number: BR-AMGEN-BRASP2012009341

PATIENT
  Age: 44 Year
  Sex: Female
  Weight: 68 kg

DRUGS (5)
  1. FERROUS SULFATE TAB [Concomitant]
     Dosage: UNK
  2. ENBREL [Suspect]
     Indication: RHEUMATOID ARTHRITIS
     Dosage: 50 MG, QWK
     Dates: start: 20090501
  3. ENBREL [Suspect]
     Dosage: 50 MG WEEKLY
     Route: 058
     Dates: start: 20111101, end: 20120101
  4. ENBREL [Suspect]
     Dosage: 50 MG, WEEKLY
     Dates: end: 20120101
  5. ENBREL [Suspect]
     Dosage: 25 MG, 2XWEEKLY
     Route: 058
     Dates: end: 20120101

REACTIONS (5)
  - BEDRIDDEN [None]
  - PAIN [None]
  - INJECTION SITE PAIN [None]
  - CRYING [None]
  - INJECTION SITE DISCOMFORT [None]
